FAERS Safety Report 18386518 (Version 1)
Quarter: 2020Q4

REPORT INFORMATION
  Report Type: Spontaneous
  Country: US (occurrence: US)
  Receive Date: 20201014
  Receipt Date: 20201014
  Transmission Date: 20210114
  Serious: Yes (Death)
  Sender: FDA-Public Use
  Company Number: None

PATIENT
  Age: 71 Year
  Sex: Male
  Weight: 88.5 kg

DRUGS (21)
  1. REMDESIVIR SOLUTION 100MG VIAL [Suspect]
     Active Substance: REMDESIVIR
     Indication: COVID-19 PNEUMONIA
     Dosage: ?          OTHER FREQUENCY:Q 24 HR ;?
     Route: 042
     Dates: start: 20200831, end: 20200903
  2. MUPIROCIN. [Concomitant]
     Active Substance: MUPIROCIN
  3. REMDESIVIR SOLUTION 100MG VIAL [Suspect]
     Active Substance: REMDESIVIR
     Indication: COVID-19 PNEUMONIA
     Route: 042
     Dates: start: 20200830, end: 20200830
  4. CLOPIDOGREL [Concomitant]
     Active Substance: CLOPIDOGREL BISULFATE
  5. DEXMEDETOMIDINE. [Concomitant]
     Active Substance: DEXMEDETOMIDINE
  6. MORPHINE SULFATE. [Concomitant]
     Active Substance: MORPHINE SULFATE
  7. PROPOFOL. [Concomitant]
     Active Substance: PROPOFOL
     Dosage: ?          OTHER STRENGTH:5-50MCG;?
  8. NITROGLYCERIN. [Concomitant]
     Active Substance: NITROGLYCERIN
  9. PANTOPRAZOLE [Concomitant]
     Active Substance: PANTOPRAZOLE
  10. THIAMINE. [Concomitant]
     Active Substance: THIAMINE
  11. PIPERACILLIN AND TAZOBACTAM [Concomitant]
     Active Substance: PIPERACILLIN SODIUM\TAZOBACTAM SODIUM
  12. ENOXAPARIN [Concomitant]
     Active Substance: ENOXAPARIN
     Dosage: ?          OTHER STRENGTH:40-80MG;?
  13. HYDROCODONE-ACETAMINOPHEN [Concomitant]
     Active Substance: ACETAMINOPHEN\HYDROCODONE
  14. RIVAROXABAN [Concomitant]
     Active Substance: RIVAROXABAN
  15. ASPIRIN. [Concomitant]
     Active Substance: ASPIRIN
  16. CHLORHEXIDINE [Concomitant]
     Active Substance: CHLORHEXIDINE
  17. ONDANSETRON [Concomitant]
     Active Substance: ONDANSETRON
  18. VANCOMYCIN [Concomitant]
     Active Substance: VANCOMYCIN
  19. ACETAMINOPHEN. [Concomitant]
     Active Substance: ACETAMINOPHEN
  20. PROMETHAZINE [Concomitant]
     Active Substance: PROMETHAZINE HYDROCHLORIDE
  21. QUETIAPINE. [Concomitant]
     Active Substance: QUETIAPINE

REACTIONS (1)
  - Septic shock [None]

NARRATIVE: CASE EVENT DATE: 20200912
